FAERS Safety Report 10258167 (Version 1)
Quarter: 2014Q2

REPORT INFORMATION
  Report Type: Spontaneous
  Country: US (occurrence: None)
  Receive Date: 20140623
  Receipt Date: 20140623
  Transmission Date: 20141212
  Serious: Yes (Disabling, Other)
  Sender: FDA-Public Use
  Company Number: None

PATIENT
  Age: 25 Year
  Sex: Male
  Weight: 110.22 kg

DRUGS (2)
  1. RISPERIDONE [Suspect]
     Indication: BIPOLAR DISORDER
     Dosage: 4 ONCE DAILY TAKEN BY MOUTH
     Route: 048
     Dates: start: 20020102, end: 20130319
  2. RISPERIDONE [Suspect]
     Indication: ANXIETY DISORDER
     Dosage: 4 ONCE DAILY TAKEN BY MOUTH
     Route: 048
     Dates: start: 20020102, end: 20130319

REACTIONS (8)
  - Type 2 diabetes mellitus [None]
  - Migraine [None]
  - Tension headache [None]
  - Dystonia [None]
  - Torticollis [None]
  - Muscle spasms [None]
  - Fatigue [None]
  - Bedridden [None]
